FAERS Safety Report 21457291 (Version 2)
Quarter: 2022Q4

REPORT INFORMATION
  Report Type: Spontaneous
  Country: CO (occurrence: CO)
  Receive Date: 20221014
  Receipt Date: 20221024
  Transmission Date: 20230112
  Serious: Yes (Other)
  Sender: FDA-Public Use
  Company Number: CO-PFIZER INC-PV202200079672

PATIENT
  Age: 58 Year
  Sex: Female

DRUGS (1)
  1. ENBREL [Suspect]
     Active Substance: ETANERCEPT
     Indication: Ankylosing spondylitis
     Dosage: 50 MILLIGRAM, QWK
     Route: 058
     Dates: start: 202209

REACTIONS (7)
  - Musculoskeletal stiffness [Unknown]
  - Malaise [Unknown]
  - Discomfort [Unknown]
  - Muscle spasms [Unknown]
  - Peripheral swelling [Unknown]
  - Back pain [Unknown]
  - Sacral pain [Unknown]
